FAERS Safety Report 4573338-5 (Version None)
Quarter: 2005Q1

REPORT INFORMATION
  Report Type: 
  Country: None (occurrence: None)
  Receive Date: 20050208
  Receipt Date: 20040706
  Transmission Date: 20050727
  Serious: No
  Sender: FDA-Public Use
  Company Number: US-GLAXOSMITHKLINE-A0520887A

PATIENT
  Sex: Male

DRUGS (6)
  1. PAXIL [Suspect]
     Indication: DRUG USE FOR UNKNOWN INDICATION
     Route: 048
  2. PRILOSEC [Concomitant]
     Dosage: 20MG PER DAY
     Route: 048
  3. EPIVIR [Concomitant]
     Indication: HIV INFECTION
     Dosage: 150MG TWICE PER DAY
     Route: 048
  4. VIREAD [Concomitant]
     Indication: HIV INFECTION
     Dosage: 300MG PER DAY
     Route: 048
  5. CYCLOBENZAPRINE [Concomitant]
     Dosage: 10MG THREE TIMES PER DAY
     Route: 048
  6. CLONAZEPAM [Concomitant]
     Dosage: .5MG AS REQUIRED
     Route: 048

REACTIONS (1)
  - DRUG WITHDRAWAL SYNDROME [None]
